FAERS Safety Report 8265900-3 (Version None)
Quarter: 2012Q2

REPORT INFORMATION
  Report Type: 
  Country: None (occurrence: None)
  Receive Date: 20120406
  Receipt Date: 20120403
  Transmission Date: 20120825
  Serious: Yes (Other)
  Sender: FDA-Public Use
  Company Number: PT-VIIV HEALTHCARE LIMITED-B0793758A

PATIENT
  Age: 34 Year
  Sex: Female

DRUGS (3)
  1. RITONAVIR [Concomitant]
     Indication: HIV INFECTION
     Route: 048
  2. ABACAVIR SULFATE/LAMIVUDINE [Suspect]
     Indication: HIV INFECTION
     Route: 048
     Dates: start: 20120301
  3. DARUNAVIR HYDRATE [Concomitant]
     Indication: HIV INFECTION
     Route: 048

REACTIONS (1)
  - HALLUCINATION [None]
